FAERS Safety Report 8462531-7 (Version None)
Quarter: 2012Q2

REPORT INFORMATION
  Report Type: 
  Country: None (occurrence: None)
  Receive Date: 20120625
  Receipt Date: 20120619
  Transmission Date: 20120825
  Serious: Yes (Hospitalization, Other)
  Sender: FDA-Public Use
  Company Number: US-BAYER-2011-022846

PATIENT
  Age: 17 Year
  Sex: Female
  Weight: 116 kg

DRUGS (19)
  1. DROSPIRENONE AND ETHINYL ESTRADIOL [Suspect]
     Dosage: UNK
     Dates: start: 20090123, end: 20090803
  2. ADVAIR DISKUS 100/50 [Concomitant]
     Indication: ASTHMA
  3. VICODIN [Concomitant]
     Indication: ANALGESIC THERAPY
  4. NAPROXEN [Concomitant]
  5. NAPROSYN [Concomitant]
  6. DESOGESTREL AND ETHINYL ESTRADIOL [Concomitant]
  7. WELLBUTRIN [Concomitant]
     Indication: ATTENTION DEFICIT/HYPERACTIVITY DISORDER
  8. YASMIN [Suspect]
     Dosage: UNK
     Dates: start: 20090123, end: 20090803
  9. PROPRANOLOL [Concomitant]
     Indication: HYPERTENSION
  10. PROPRANOLOL [Concomitant]
     Indication: HEADACHE
  11. DEPO-PROVERA [Concomitant]
     Indication: CONTRACEPTION
  12. CARAFATE [Concomitant]
  13. DOXYCYCLINE [Concomitant]
  14. YAZ [Suspect]
     Dosage: UNK
     Dates: start: 20090123, end: 20090803
  15. KLONOPIN [Concomitant]
     Indication: RESTLESS LEGS SYNDROME
  16. WELLBUTRIN [Concomitant]
     Indication: DEPRESSION
  17. ORAL CONTRACEPTIVE NOS [Concomitant]
  18. NEURONTIN [Concomitant]
  19. VENTOLIN [Concomitant]

REACTIONS (10)
  - CHOLECYSTITIS [None]
  - NERVOUSNESS [None]
  - PAIN [None]
  - CHOLECYSTITIS CHRONIC [None]
  - GALLBLADDER CHOLESTEROLOSIS [None]
  - GALLBLADDER DISORDER [None]
  - DEPRESSION [None]
  - EMOTIONAL DISTRESS [None]
  - FEAR OF DEATH [None]
  - INJURY [None]
